FAERS Safety Report 22858019 (Version 8)
Quarter: 2023Q4

REPORT INFORMATION
  Report Type: Report from Study
  Country: ES (occurrence: ES)
  Receive Date: 20230824
  Receipt Date: 20231129
  Transmission Date: 20240110
  Serious: Yes (Other)
  Sender: FDA-Public Use
  Company Number: ES-ABBVIE-5378777

PATIENT
  Sex: Male

DRUGS (2)
  1. CARBIDOPA\LEVODOPA [Suspect]
     Active Substance: CARBIDOPA\LEVODOPA
     Indication: Parkinson^s disease
     Route: 050
     Dates: start: 20230322, end: 20231123
  2. CARBIDOPA\LEVODOPA [Suspect]
     Active Substance: CARBIDOPA\LEVODOPA
     Route: 050

REACTIONS (15)
  - Weight decreased [Not Recovered/Not Resolved]
  - Unevaluable event [Recovered/Resolved]
  - Stoma site erythema [Recovered/Resolved]
  - Vitamin B12 decreased [Recovering/Resolving]
  - Granuloma [Recovered/Resolved]
  - Stoma site inflammation [Recovered/Resolved]
  - Hypophagia [Unknown]
  - Stoma site pain [Recovered/Resolved]
  - Drug ineffective [Not Recovered/Not Resolved]
  - Stoma site hypergranulation [Recovered/Resolved]
  - Haemorrhage [Recovered/Resolved]
  - Stoma site discharge [Recovered/Resolved]
  - Stoma site reaction [Recovered/Resolved]
  - Faecal volume increased [Unknown]
  - Abdominal rigidity [Unknown]

NARRATIVE: CASE EVENT DATE: 20230101
